FAERS Safety Report 19466379 (Version 1)
Quarter: 2021Q2

REPORT INFORMATION
  Report Type: Report from Study
  Country: FR (occurrence: FR)
  Receive Date: 20210627
  Receipt Date: 20210627
  Transmission Date: 20210717
  Serious: Yes (Life-Threatening, Other)
  Sender: FDA-Public Use
  Company Number: FR-SUN PHARMACEUTICAL INDUSTRIES LTD-2021R1-301624

PATIENT
  Sex: Male
  Weight: 85 kg

DRUGS (1)
  1. DEXMEDETOMIDINE. [Suspect]
     Active Substance: DEXMEDETOMIDINE
     Indication: ANAESTHESIA
     Dosage: 0.6 MICROGRAM/KILOGRAM/H, UNK
     Route: 042

REACTIONS (2)
  - Cardiac arrest [Unknown]
  - Bradycardia [Unknown]
